FAERS Safety Report 17000810 (Version 1)
Quarter: 2019Q4

REPORT INFORMATION
  Report Type: Spontaneous
  Country: US (occurrence: US)
  Receive Date: 20191106
  Receipt Date: 20191106
  Transmission Date: 20200122
  Serious: No
  Sender: FDA-Public Use
  Company Number: US-SA-2019SA300176

PATIENT
  Sex: Female

DRUGS (3)
  1. DUPIXENT [Suspect]
     Active Substance: DUPILUMAB
     Indication: DERMATITIS ATOPIC
     Dosage: 300 MG, QOW
     Route: 058
     Dates: start: 20180726
  2. IRBESARTAN. [Concomitant]
     Active Substance: IRBESARTAN
  3. HYDROCORT [HYDROCORTISONE SODIUM SUCCINATE] [Concomitant]

REACTIONS (1)
  - Rash [Not Recovered/Not Resolved]
